FAERS Safety Report 6169188-9 (Version None)
Quarter: 2009Q2

REPORT INFORMATION
  Report Type: 
  Country: None (occurrence: None)
  Receive Date: 20090424
  Receipt Date: 20090218
  Transmission Date: 20091009
  Serious: No
  Sender: FDA-Public Use
  Company Number: ALL1-2009-00443

PATIENT
  Age: 8 Year
  Sex: Male
  Weight: 29.9 kg

DRUGS (5)
  1. VYVANSE [Suspect]
     Indication: ATTENTION DEFICIT/HYPERACTIVITY DISORDER
     Dosage: 50 MG, 1X/DAY QD, ORAL; 70 MG, 1X/DAY, AD, ORAL
     Route: 048
     Dates: start: 20070901, end: 20080301
  2. VYVANSE [Suspect]
     Indication: ATTENTION DEFICIT/HYPERACTIVITY DISORDER
     Dosage: 50 MG, 1X/DAY QD, ORAL; 70 MG, 1X/DAY, AD, ORAL
     Route: 048
     Dates: start: 20081201, end: 20081201
  3. CONCERTA [Suspect]
     Indication: ATTENTION DEFICIT/HYPERACTIVITY DISORDER
     Dosage: 54 MG, 2X/DAY BID, ORAL; 54 MG, 2X/DAY BID, ORAL
     Route: 048
     Dates: start: 20080301, end: 20081201
  4. CONCERTA [Suspect]
     Indication: ATTENTION DEFICIT/HYPERACTIVITY DISORDER
     Dosage: 54 MG, 2X/DAY BID, ORAL; 54 MG, 2X/DAY BID, ORAL
     Route: 048
     Dates: start: 20081201
  5. RISPERDAL [Concomitant]

REACTIONS (4)
  - DECREASED APPETITE [None]
  - INCREASED APPETITE [None]
  - MOOD ALTERED [None]
  - SOMNOLENCE [None]
